FAERS Safety Report 22604448 (Version 1)
Quarter: 2023Q2

REPORT INFORMATION
  Report Type: Spontaneous
  Country: FR (occurrence: FR)
  Receive Date: 20230615
  Receipt Date: 20230615
  Transmission Date: 20230722
  Serious: Yes (Death, Other)
  Sender: FDA-Public Use
  Company Number: FR-AFSSAPS-LY2023000905

PATIENT
  Age: 86 Year
  Sex: Male
  Weight: 76 kg

DRUGS (10)
  1. TAMSULOSIN [Suspect]
     Active Substance: TAMSULOSIN
     Indication: Product used for unknown indication
     Dosage: 1 DOSAGE FORM
     Route: 048
     Dates: end: 20230530
  2. BISOPROLOL [Suspect]
     Active Substance: BISOPROLOL
     Indication: Product used for unknown indication
     Dosage: 1 DOSAGE FORM(1.25MG)
     Route: 048
     Dates: end: 20230530
  3. MOLSIDOMINE [Suspect]
     Active Substance: MOLSIDOMINE
     Indication: Prescription drug used without a prescription
     Dosage: 1 DOSAGE FORM
     Route: 048
     Dates: start: 20230530, end: 20230530
  4. MIANSERIN [Suspect]
     Active Substance: MIANSERIN
     Indication: Prescription drug used without a prescription
     Dosage: 1 DOSAGE FORM
     Route: 048
     Dates: start: 20230530, end: 20230530
  5. ACETAMINOPHEN [Suspect]
     Active Substance: ACETAMINOPHEN
     Indication: Prescription drug used without a prescription
     Dosage: 1 DOSAGE FORM
     Route: 048
     Dates: start: 20230530, end: 20230530
  6. PANTOPRAZOLE [Suspect]
     Active Substance: PANTOPRAZOLE
     Indication: Prescription drug used without a prescription
     Dosage: 1 DOSAGE FORM
     Route: 048
     Dates: start: 20230530, end: 20230530
  7. LIPTRUZET [Suspect]
     Active Substance: ATORVASTATIN CALCIUM\EZETIMIBE
     Indication: Product used for unknown indication
     Dosage: 1 DOSAGE FORM,(LIPTRUZET 10 (SAI))
     Route: 048
     Dates: end: 20230530
  8. ELIQUIS [Suspect]
     Active Substance: APIXABAN
     Indication: Product used for unknown indication
     Dosage: 1 DOSAGE FORM(2.5MG)
     Route: 048
     Dates: end: 20230530
  9. VERAPAMIL HCL [Suspect]
     Active Substance: VERAPAMIL HYDROCHLORIDE
     Indication: Prescription drug used without a prescription
     Dosage: 1 DOSAGE FORM (240 MG LP)
     Route: 048
     Dates: start: 20230530, end: 20230530
  10. LAMALINE (ACETAMINOPHEN\CAFFEINE\OPIUM) [Suspect]
     Active Substance: ACETAMINOPHEN\CAFFEINE\OPIUM
     Indication: Prescription drug used without a prescription
     Dosage: 1 DOSAGE FORM
     Route: 048
     Dates: start: 20230530, end: 20230530

REACTIONS (2)
  - Sudden death [Fatal]
  - Prescription drug used without a prescription [Fatal]

NARRATIVE: CASE EVENT DATE: 20230531
